FAERS Safety Report 8155897-9 (Version None)
Quarter: 2012Q1

REPORT INFORMATION
  Report Type: 
  Country: None (occurrence: None)
  Receive Date: 20120222
  Receipt Date: 20120127
  Transmission Date: 20120608
  Serious: Yes (Life-Threatening, Hospitalization, Other)
  Sender: FDA-Public Use
  Company Number: DO-SANOFI-AVENTIS-2012SA004665

PATIENT
  Age: 60 Year
  Sex: Male

DRUGS (3)
  1. JEVTANA KIT [Suspect]
     Indication: PROSTATE CANCER
     Route: 042
     Dates: start: 20120113, end: 20120113
  2. PREDNISONE [Concomitant]
     Route: 065
     Dates: start: 20120113, end: 20120117
  3. DEXAMETHASONE [Concomitant]
     Route: 065
     Dates: start: 20120113, end: 20120117

REACTIONS (9)
  - LEUKOPENIA [None]
  - THROMBOCYTOPENIA [None]
  - AMOEBIASIS [None]
  - GASTROINTESTINAL HAEMORRHAGE [None]
  - ASTHENIA [None]
  - DIARRHOEA [None]
  - NEUTROPENIA [None]
  - DECREASED APPETITE [None]
  - VOMITING [None]
